FAERS Safety Report 8514972-7 (Version None)
Quarter: 2012Q3

REPORT INFORMATION
  Report Type: 
  Country: None (occurrence: None)
  Receive Date: 20120717
  Receipt Date: 20120702
  Transmission Date: 20120928
  Serious: Yes (Other)
  Sender: FDA-Public Use
  Company Number: GB-009507513-1207GBR002949

PATIENT

DRUGS (3)
  1. WARFARIN SODIUM [Concomitant]
  2. JANUVIA [Suspect]
     Dosage: CUT IN HALF 100MG TABLET
     Route: 048
     Dates: start: 20120601
  3. METFORMIN HYDROCHLORIDE [Concomitant]

REACTIONS (9)
  - DYSPNOEA [None]
  - PYREXIA [None]
  - MALAISE [None]
  - WRONG TECHNIQUE IN DRUG USAGE PROCESS [None]
  - DIARRHOEA [None]
  - GAIT DISTURBANCE [None]
  - MYOCARDIAL INFARCTION [None]
  - INFLUENZA [None]
  - OEDEMA PERIPHERAL [None]
